FAERS Safety Report 7272894-6 (Version None)
Quarter: 2011Q1

REPORT INFORMATION
  Report Type: 
  Country: None (occurrence: None)
  Receive Date: 20110128
  Receipt Date: 20110121
  Transmission Date: 20110831
  Serious: Yes (Other)
  Sender: FDA-Public Use
  Company Number: GB-ACCORD-005087

PATIENT
  Age: 54 Year
  Sex: Female

DRUGS (2)
  1. MITOMYCIN [Suspect]
     Indication: ANAL CANCER STAGE II
     Dosage: 10.00-MG/M2-1.0 DAYS INTRAVENOUS BOLUS
     Route: 040
  2. FLUOROURACIL [Suspect]
     Indication: ANAL CANCER STAGE II
     Dosage: 1000.00-MG/M2-1.0 DAYS

REACTIONS (10)
  - ILEUS [None]
  - DIARRHOEA [None]
  - DRUG ERUPTION [None]
  - PRURITUS [None]
  - NEUTROPENIA [None]
  - THROMBOCYTOPENIA [None]
  - LEUKOPENIA [None]
  - OFF LABEL USE [None]
  - ERYTHEMA MULTIFORME [None]
  - DECREASED APPETITE [None]
